FAERS Safety Report 8342253-3 (Version None)
Quarter: 2012Q2

REPORT INFORMATION
  Report Type: 
  Country: None (occurrence: None)
  Receive Date: 20120507
  Receipt Date: 20120502
  Transmission Date: 20120825
  Serious: Yes (Other)
  Sender: FDA-Public Use
  Company Number: DE-AMGEN-DEUSP2012024008

PATIENT
  Age: 66 Year
  Sex: Male

DRUGS (5)
  1. OMEP                               /00661201/ [Concomitant]
     Indication: PROPHYLAXIS
     Dosage: 20 MG, QD
     Route: 048
     Dates: start: 20040101
  2. LYRICA [Concomitant]
     Indication: RESTLESS LEGS SYNDROME
     Dosage: 300 MG, UNK
     Route: 048
     Dates: start: 20040101
  3. METOPROLOL TARTRATE [Concomitant]
     Indication: ARRHYTHMIA
     Dosage: UNK UNK, BID
     Route: 048
     Dates: start: 20100101
  4. NPLATE [Suspect]
     Indication: IDIOPATHIC THROMBOCYTOPENIC PURPURA
     Dosage: UNK UNK, QWK
     Route: 058
     Dates: end: 20120401
  5. VOTUM                              /01635402/ [Concomitant]
     Indication: HYPERTENSION
     Dosage: 0.5 UNK, UNK
     Route: 048
     Dates: start: 20020101

REACTIONS (2)
  - SLEEP DISORDER [None]
  - POLYNEUROPATHY [None]
